FAERS Safety Report 4679043-9 (Version None)
Quarter: 2005Q2

REPORT INFORMATION
  Report Type: 
  Country: None (occurrence: None)
  Receive Date: 20050527
  Receipt Date: 20050516
  Transmission Date: 20051028
  Serious: Yes (Life-Threatening, Hospitalization, Disabling, Other)
  Sender: FDA-Public Use
  Company Number: 2004065552

PATIENT
  Age: 49 Year
  Sex: Male

DRUGS (15)
  1. NEURONTIN [Suspect]
     Indication: NEURALGIA
     Dosage: 300 MG (100 MG, 3 IN 1 D),
     Dates: start: 20000701
  2. NEURONTIN [Suspect]
     Indication: NEUROPATHY
     Dosage: 300 MG (100 MG, 3 IN 1 D),
     Dates: start: 20000701
  3. NEURONTIN [Suspect]
     Indication: PAIN
     Dosage: 300 MG (100 MG, 3 IN 1 D),
     Dates: start: 20000701
  4. KLONOPIN [Suspect]
     Indication: PAIN
     Dosage: 1 MG (0.5 MG, 2 IN 1 D),
  5. PERCOCET [Suspect]
     Indication: PAIN
     Dosage: 3 TABLETS (3 IN 1 D),
  6. LORCET-HD [Suspect]
     Indication: NEURALGIA
     Dosage: 60 MG (10 MG, 1 IN 4 HR),
  7. LORCET-HD [Suspect]
     Indication: NEUROPATHY
     Dosage: 60 MG (10 MG, 1 IN 4 HR),
  8. LORCET-HD [Suspect]
     Indication: PAIN
     Dosage: 60 MG (10 MG, 1 IN 4 HR),
  9. PROTONIX [Concomitant]
  10. XALATAN [Concomitant]
  11. NEXIUM [Concomitant]
  12. GEMFIBROZIL [Concomitant]
  13. PRAVACHOL [Concomitant]
  14. FLONASE [Concomitant]
  15. GAVISCON [Concomitant]

REACTIONS (24)
  - ABDOMINAL INJURY [None]
  - ABDOMINAL PAIN UPPER [None]
  - ABSCESS [None]
  - ABSCESS DRAINAGE [None]
  - CANDIDIASIS [None]
  - CHEST INJURY [None]
  - COAGULOPATHY [None]
  - COLON INJURY [None]
  - DRUG INEFFECTIVE [None]
  - GUN SHOT WOUND [None]
  - HAEMORRHAGE [None]
  - HAEMOTHORAX [None]
  - HYPOTENSION [None]
  - INJURY [None]
  - INTENTIONAL MISUSE [None]
  - MAJOR DEPRESSION [None]
  - OVERDOSE [None]
  - PAIN [None]
  - PYREXIA [None]
  - SOMNOLENCE [None]
  - SPLENECTOMY [None]
  - SPLENIC INJURY [None]
  - STAPHYLOCOCCAL INFECTION [None]
  - SUICIDE ATTEMPT [None]
